FAERS Safety Report 8829161 (Version 2)
Quarter: 2012Q4

REPORT INFORMATION
  Report Type: 
  Country: US (occurrence: US)
  Receive Date: 20121008
  Receipt Date: 20121106
  Transmission Date: 20130627
  Serious: Yes (Death)
  Sender: FDA-Public Use
  Company Number: CHPA2012US021210

PATIENT
  Age: 92 Year
  Sex: Female

DRUGS (3)
  1. BENEFIBER UNKNOWN [Suspect]
     Indication: CONSTIPATION
     Dosage: 3 TSP, QAM
     Route: 048
     Dates: end: 201105
  2. UNSPECIFIED INGREDIENT [Suspect]
     Indication: FUNGAL INFECTION
     Dosage: 1 DF, UNK
     Route: 048
     Dates: start: 20110509, end: 20110511
  3. CARDIAC THERAPY [Concomitant]
     Dosage: UNK, UNK

REACTIONS (8)
  - Death [Fatal]
  - Fungal infection [Unknown]
  - Decreased appetite [Unknown]
  - Dizziness [Unknown]
  - Diarrhoea [Unknown]
  - Therapeutic response unexpected [Unknown]
  - Off label use [Unknown]
  - Incorrect dose administered [Unknown]
